FAERS Safety Report 12812079 (Version 2)
Quarter: 2016Q4

REPORT INFORMATION
  Report Type: Spontaneous
  Country: JP (occurrence: JP)
  Receive Date: 20161005
  Receipt Date: 20161205
  Transmission Date: 20170207
  Serious: Yes (Other)
  Sender: FDA-Public Use
  Company Number: JP-JNJFOC-20161000246

PATIENT

DRUGS (1)
  1. SIMPONI [Suspect]
     Active Substance: GOLIMUMAB
     Indication: RHEUMATOID ARTHRITIS
     Route: 058

REACTIONS (8)
  - Pustular psoriasis [Unknown]
  - Pneumonia [Unknown]
  - Stomatitis [Unknown]
  - Drug effect incomplete [Unknown]
  - Cell marker increased [Unknown]
  - Therapeutic response decreased [Unknown]
  - Pyrexia [Unknown]
  - Herpes zoster [Unknown]
